FAERS Safety Report 9586090 (Version 1)
Quarter: 2013Q4

REPORT INFORMATION
  Report Type: Spontaneous
  Country: US (occurrence: None)
  Receive Date: 20131002
  Receipt Date: 20131002
  Transmission Date: 20140711
  Serious: Yes (Life-Threatening, Hospitalization)
  Sender: FDA-Public Use
  Company Number: None

PATIENT
  Age: 61 Year
  Sex: Male
  Weight: 94.5 kg

DRUGS (1)
  1. QUETIAPINE [Suspect]
     Indication: SCHIZOAFFECTIVE DISORDER
     Dates: start: 20130205, end: 20130209

REACTIONS (15)
  - Confusional state [None]
  - Agitation [None]
  - Tremor [None]
  - Delirium [None]
  - Hyperhidrosis [None]
  - Neuroleptic malignant syndrome [None]
  - Vomiting [None]
  - Diarrhoea [None]
  - Dyspnoea [None]
  - Tachypnoea [None]
  - Tachycardia [None]
  - Chest pain [None]
  - Torsade de pointes [None]
  - Subdural haematoma [None]
  - Arrhythmia [None]
